FAERS Safety Report 10907154 (Version 1)
Quarter: 2015Q1

REPORT INFORMATION
  Report Type: Spontaneous
  Country: US (occurrence: None)
  Receive Date: 20150309
  Receipt Date: 20150309
  Transmission Date: 20150721
  Serious: Yes (Hospitalization)
  Sender: FDA-Public Use
  Company Number: None

PATIENT
  Age: 83 Year
  Sex: Female
  Weight: 86 kg

DRUGS (10)
  1. CARDIZEM 30 MG [Concomitant]
  2. LASIX 80 MG [Concomitant]
  3. SOTALOL 40 MG [Concomitant]
  4. CLOPIDOGREL [Suspect]
     Active Substance: CLOPIDOGREL BISULFATE
     Indication: CORONARY ANGIOPLASTY
     Dosage: 1 TABLET QD ORAL
     Route: 048
  5. PREDNISONE 2.5 MG [Concomitant]
  6. PERCOCET [Concomitant]
     Active Substance: ACETAMINOPHEN\OXYCODONE HYDROCHLORIDE
  7. SYNTHROID [Concomitant]
     Active Substance: LEVOTHYROXINE SODIUM
  8. LANTUS [Concomitant]
     Active Substance: INSULIN GLARGINE
  9. CLOPIDOGREL [Suspect]
     Active Substance: CLOPIDOGREL BISULFATE
     Indication: CORONARY ARTERY DISEASE
     Dosage: 1 TABLET QD ORAL
     Route: 048
  10. ASPIRIN 81 MG [Suspect]
     Active Substance: ASPIRIN
     Indication: CORONARY ARTERY DISEASE
     Dosage: 1 TABLETS QD ORAL
     Route: 048

REACTIONS (9)
  - Haematemesis [None]
  - Haemoglobin decreased [None]
  - Abdominal pain [None]
  - Pseudomonas infection [None]
  - Faeces discoloured [None]
  - Dizziness [None]
  - Hypotension [None]
  - Asthenia [None]
  - Cellulitis [None]

NARRATIVE: CASE EVENT DATE: 20140418
